FAERS Safety Report 24914489 (Version 1)
Quarter: 2025Q1

REPORT INFORMATION
  Report Type: Spontaneous
  Country: IN (occurrence: IN)
  Receive Date: 20250203
  Receipt Date: 20250203
  Transmission Date: 20250409
  Serious: Yes (Death, Other)
  Sender: AMGEN
  Company Number: IN-AMGEN-INDSP2025018195

PATIENT

DRUGS (1)
  1. CINACALCET HYDROCHLORIDE [Suspect]
     Active Substance: CINACALCET HYDROCHLORIDE
     Indication: Hypercalcaemia
     Route: 065

REACTIONS (3)
  - Calciphylaxis [Fatal]
  - Neoplasm malignant [Fatal]
  - Tuberculosis [Recovered/Resolved]
